FAERS Safety Report 8289457-6 (Version None)
Quarter: 2012Q2

REPORT INFORMATION
  Report Type: 
  Country: None (occurrence: None)
  Receive Date: 20120417
  Receipt Date: 20120412
  Transmission Date: 20120825
  Serious: Yes (Life-Threatening, Hospitalization)
  Sender: FDA-Public Use
  Company Number: CH-GENZYME-CLOF-1001922

PATIENT
  Sex: Male
  Weight: 97 kg

DRUGS (4)
  1. EVOLTRA [Suspect]
  2. IDARUBICIN HCL [Suspect]
     Indication: ACUTE MYELOID LEUKAEMIA
     Dosage: 24 MG X 3
     Route: 042
     Dates: start: 20111112, end: 20111114
  3. CYTARABINE [Suspect]
     Indication: ACUTE MYELOID LEUKAEMIA
     Dosage: 400 MG X 7
     Route: 042
     Dates: start: 20111112, end: 20111116
  4. EVOLTRA [Suspect]
     Indication: ACUTE MYELOID LEUKAEMIA
     Dosage: 20 MG X 5
     Route: 042
     Dates: start: 20111112, end: 20111119

REACTIONS (3)
  - RENAL FAILURE ACUTE [None]
  - NEUTROPENIC COLITIS [None]
  - SEPSIS [None]
